FAERS Safety Report 19871421 (Version 1)
Quarter: 2021Q3

REPORT INFORMATION
  Report Type: Report from Study
  Country: CL (occurrence: CN)
  Receive Date: 20210923
  Receipt Date: 20210923
  Transmission Date: 20211014
  Serious: Yes (Hospitalization, Other)
  Sender: FDA-Public Use
  Company Number: CL-ALS-000410

PATIENT
  Age: 72 Year
  Sex: Female

DRUGS (5)
  1. METFORMIN [Suspect]
     Active Substance: METFORMIN HYDROCHLORIDE
     Indication: TYPE 2 DIABETES MELLITUS
     Dosage: 850 MG EVERY 12 H
     Route: 065
  2. SULFAMETHOXAZOLE/TRIMETHOPRIM [Suspect]
     Active Substance: SULFAMETHOXAZOLE\TRIMETHOPRIM
     Indication: PROPHYLAXIS
     Route: 065
  3. LOSARTAN. [Suspect]
     Active Substance: LOSARTAN
     Indication: HYPERTENSION
     Dosage: 50 MG
     Route: 065
  4. ENOXAPARIN [Suspect]
     Active Substance: ENOXAPARIN
     Indication: THROMBOSIS PROPHYLAXIS
     Route: 065
  5. DEXAMETHASONE. [Suspect]
     Active Substance: DEXAMETHASONE
     Indication: BRONCHIAL NEOPLASM
     Dosage: 8 MG EVERY 8 H
     Route: 065

REACTIONS (11)
  - Paraesthesia [Unknown]
  - Urinary incontinence [Unknown]
  - Bronchial neoplasm [Unknown]
  - Hyponatraemia [Unknown]
  - Lymphadenopathy [Unknown]
  - Hypoaldosteronism [Unknown]
  - Inappropriate antidiuretic hormone secretion [Unknown]
  - Hyperkalaemia [Unknown]
  - Lumbar vertebral fracture [Unknown]
  - Hilar lymphadenopathy [Unknown]
  - Lymphadenopathy mediastinal [Unknown]
